FAERS Safety Report 6840140-0 (Version None)
Quarter: 2010Q3

REPORT INFORMATION
  Report Type: 
  Country: None (occurrence: None)
  Receive Date: 20100709
  Receipt Date: 20100628
  Transmission Date: 20110219
  Serious: Yes (Other)
  Sender: FDA-Public Use
  Company Number: 20108647

PATIENT
  Age: 12 Year
  Sex: Male

DRUGS (1)
  1. LIORESAL [Suspect]
     Indication: MUSCLE SPASTICITY
     Dosage: 240.6 MCG, DAILY, INTRATHECAL
     Route: 037

REACTIONS (14)
  - ASTHENIA [None]
  - DEVICE BREAKAGE [None]
  - DRUG ADMINISTRATION ERROR [None]
  - DRUG WITHDRAWAL SYNDROME [None]
  - DYSSOMNIA [None]
  - HYPOTONIA [None]
  - IRRITABILITY [None]
  - MALAISE [None]
  - MUSCLE SPASTICITY [None]
  - MUSCLE TIGHTNESS [None]
  - OVERDOSE [None]
  - SOMNOLENCE [None]
  - URINARY RETENTION [None]
  - VOMITING [None]
